FAERS Safety Report 5963758-6 (Version None)
Quarter: 2008Q4

REPORT INFORMATION
  Report Type: 
  Country: None (occurrence: None)
  Receive Date: 20081120
  Receipt Date: 20081110
  Transmission Date: 20090506
  Serious: Yes (Other)
  Sender: FDA-Public Use
  Company Number: DSU-2008-01964

PATIENT
  Age: 69 Year
  Sex: Female

DRUGS (1)
  1. OLMESARTAN MEDOXOMIL AND HYDROCHLOROTHIZIDE [Suspect]
     Indication: HYPERTENSION
     Dosage: 20/12.5 MG (QD) PER ORAL
     Route: 048
     Dates: start: 20080401, end: 20080501

REACTIONS (2)
  - PALPITATIONS [None]
  - TACHYCARDIA [None]
